FAERS Safety Report 8844300 (Version 3)
Quarter: 2013Q2

REPORT INFORMATION
  Report Type: Report from Study
  Country: JP (occurrence: JP)
  Receive Date: 20121017
  Receipt Date: 20130410
  Transmission Date: 20140414
  Serious: Yes (Hospitalization)
  Sender: FDA-Public Use
  Company Number: JP-009507513-1210JPN001778

PATIENT
  Age: 64 Year
  Sex: Female
  Weight: 45 kg

DRUGS (7)
  1. PEGINTRON [Suspect]
     Indication: CHRONIC HEPATITIS C
     Dosage: 80 MICROGRAM PER KILOGRAM, QW
     Route: 058
  2. PEGINTRON [Suspect]
     Dosage: UNK
     Route: 058
     Dates: end: 20120806
  3. REBETOL [Suspect]
     Indication: CHRONIC HEPATITIS C
     Dosage: 600 MG, QD
     Route: 048
     Dates: end: 20120725
  4. REBETOL [Suspect]
     Dosage: 200 MG, QD
     Route: 048
     Dates: start: 20120726, end: 20120806
  5. TELAVIC [Suspect]
     Indication: CHRONIC HEPATITIS C
     Dosage: 1500 MG, QD
     Route: 048
     Dates: start: 20120614, end: 20120718
  6. TELAVIC [Suspect]
     Dosage: 1000 MG, QD
     Route: 048
     Dates: start: 20120719, end: 20120806
  7. URSO [Concomitant]
     Indication: CHRONIC HEPATITIS C
     Dosage: 600 MG, QD, POR FORMULATION
     Route: 048

REACTIONS (2)
  - Anaemia [Recovering/Resolving]
  - Malaise [Unknown]
